FAERS Safety Report 19245321 (Version 1)
Quarter: 2021Q2

REPORT INFORMATION
  Report Type: Other
  Country: US (occurrence: US)
  Receive Date: 20210512
  Receipt Date: 20210512
  Transmission Date: 20210717
  Serious: Yes (Other)
  Sender: FDA-Public Use
  Company Number: US-JIANGSU HANSOH PHARMACEUTICAL CO., LTD-2110454

PATIENT
  Age: 35 Year
  Sex: Male

DRUGS (1)
  1. GEMCITABINE. [Suspect]
     Active Substance: GEMCITABINE
     Indication: PANCREATIC CARCINOMA RECURRENT

REACTIONS (4)
  - Acute kidney injury [Not Recovered/Not Resolved]
  - Thrombotic microangiopathy [Not Recovered/Not Resolved]
  - Multiple organ dysfunction syndrome [Not Recovered/Not Resolved]
  - Stress cardiomyopathy [Not Recovered/Not Resolved]
